FAERS Safety Report 15654541 (Version 2)
Quarter: 2018Q4

REPORT INFORMATION
  Report Type: Report from Study
  Country: ES (occurrence: ES)
  Receive Date: 20181126
  Receipt Date: 20181217
  Transmission Date: 20190205
  Serious: Yes (Hospitalization)
  Sender: FDA-Public Use
  Company Number: ES-ROCHE-2217605

PATIENT
  Age: 60 Year
  Sex: Female

DRUGS (4)
  1. BIRESP SPIROMAX [Concomitant]
     Indication: RESPIRATORY FAILURE
     Dosage: 160/4,5 INH
     Route: 065
     Dates: start: 20181115
  2. URBASON [Concomitant]
     Active Substance: METHYLPREDNISOLONE
     Route: 048
     Dates: start: 20181119, end: 20181121
  3. OCRELIZUMAB. [Suspect]
     Active Substance: OCRELIZUMAB
     Indication: PRIMARY PROGRESSIVE MULTIPLE SCLEROSIS
     Route: 042
     Dates: start: 201809
  4. URBASON [Concomitant]
     Active Substance: METHYLPREDNISOLONE
     Indication: RESPIRATORY FAILURE
     Route: 048
     Dates: start: 20181112, end: 20181118

REACTIONS (2)
  - Pneumonia [Recovering/Resolving]
  - Muscle spasticity [Recovering/Resolving]

NARRATIVE: CASE EVENT DATE: 20181107
